FAERS Safety Report 8231813-6 (Version None)
Quarter: 2012Q1

REPORT INFORMATION
  Report Type: 
  Country: None (occurrence: None)
  Receive Date: 20120323
  Receipt Date: 20120314
  Transmission Date: 20120608
  Serious: Yes (Hospitalization, Other)
  Sender: FDA-Public Use
  Company Number: DE-JNJFOC-20080200898

PATIENT
  Sex: Male
  Weight: 48 kg

DRUGS (5)
  1. INFLIXIMAB, RECOMBINANT [Suspect]
     Route: 042
     Dates: start: 20070508
  2. METHOTREXATE [Concomitant]
     Indication: CROHN'S DISEASE
     Dates: start: 20071001
  3. INFLIXIMAB, RECOMBINANT [Suspect]
     Indication: CROHN'S DISEASE
     Route: 042
     Dates: start: 20070611
  4. PREDNISONE TAB [Concomitant]
     Indication: CROHN'S DISEASE
     Dates: start: 20071001
  5. INFLIXIMAB, RECOMBINANT [Suspect]
     Route: 042
     Dates: start: 20070424

REACTIONS (2)
  - FISTULA [None]
  - ANAPHYLACTIC REACTION [None]
